FAERS Safety Report 4778728-3 (Version None)
Quarter: 2005Q3

REPORT INFORMATION
  Report Type: 
  Country: None (occurrence: None)
  Receive Date: 20050922
  Receipt Date: 20050912
  Transmission Date: 20060218
  Serious: Yes (Hospitalization, Disabling)
  Sender: FDA-Public Use
  Company Number: 2005127314

PATIENT
  Age: 72 Year
  Sex: Female

DRUGS (1)
  1. AZITHROMYCIN [Suspect]
     Indication: TONSILLITIS
     Dosage: 500 MG, ORAL
     Route: 048
     Dates: start: 20050821, end: 20050822

REACTIONS (2)
  - CENTRAL PONTINE MYELINOLYSIS [None]
  - COMA [None]
